FAERS Safety Report 6638460-8 (Version None)
Quarter: 2010Q1

REPORT INFORMATION
  Report Type: 
  Country: None (occurrence: None)
  Receive Date: 20100317
  Receipt Date: 20100127
  Transmission Date: 20100710
  Serious: Yes (Hospitalization, Other)
  Sender: FDA-Public Use
  Company Number: BE-SANOFI-AVENTIS-2010SA003348

PATIENT
  Age: 76 Year
  Sex: Female

DRUGS (3)
  1. OXALIPLATIN [Suspect]
     Route: 041
     Dates: start: 20080717, end: 20080717
  2. OXALIPLATIN [Suspect]
     Route: 041
     Dates: start: 20090407, end: 20090407
  3. XELODA [Suspect]
     Route: 048
     Dates: start: 20080717, end: 20090407

REACTIONS (7)
  - BLOOD LACTATE DEHYDROGENASE INCREASED [None]
  - FALL [None]
  - HAEMATOMA [None]
  - LEUKOPENIA [None]
  - LIVER FUNCTION TEST ABNORMAL [None]
  - NEUTROPENIC COLITIS [None]
  - THROMBOCYTOPENIA [None]
